FAERS Safety Report 4642351-1 (Version None)
Quarter: 2005Q2

REPORT INFORMATION
  Report Type: 
  Country: None (occurrence: None)
  Receive Date: 20050421
  Receipt Date: 20050421
  Transmission Date: 20051028
  Serious: Yes (Other)
  Sender: FDA-Public Use
  Company Number: None

PATIENT
  Sex: Male

DRUGS (9)
  1. FENTANYL TRANSDERM PATCH [Suspect]
     Indication: PAIN
     Dosage: APPLY 2 PATCHES TO SKIN Q 72HRS
     Route: 062
     Dates: start: 20050401, end: 20050415
  2. OXYCODONE AND ACETAMINOPHEN [Concomitant]
  3. GABAPENTIN [Concomitant]
  4. FLOMAX [Concomitant]
  5. LIPITOR [Concomitant]
  6. HYDROCHLOROTHIAZIDE [Concomitant]
  7. BUSPIRONE HCL [Concomitant]
  8. NIFEDIPINE [Concomitant]
  9. PAROXETINE HCL [Concomitant]

REACTIONS (2)
  - DRUG WITHDRAWAL SYNDROME [None]
  - PHARMACEUTICAL PRODUCT COMPLAINT [None]
